FAERS Safety Report 11444627 (Version 3)
Quarter: 2015Q4

REPORT INFORMATION
  Report Type: Report from Study
  Country: US (occurrence: US)
  Receive Date: 20150902
  Receipt Date: 20151021
  Transmission Date: 20160304
  Serious: No
  Sender: FDA-Public Use
  Company Number: US-AMGEN-USASL2015089193

PATIENT
  Age: 38 Year
  Sex: Male

DRUGS (1)
  1. ENBREL [Suspect]
     Active Substance: ETANERCEPT
     Indication: PSORIASIS
     Dosage: TWO 25 MG MULTIDOSE VIALS TWICE A WEEK
     Route: 065
     Dates: start: 20150818

REACTIONS (6)
  - Wrong technique in product usage process [Unknown]
  - Injection site reaction [Unknown]
  - Injection site warmth [Unknown]
  - Injection site erythema [Unknown]
  - Device issue [Unknown]
  - No therapeutic response [Not Recovered/Not Resolved]

NARRATIVE: CASE EVENT DATE: 201508
